FAERS Safety Report 12713640 (Version 2)
Quarter: 2016Q3

REPORT INFORMATION
  Report Type: Report from Study
  Country: FR (occurrence: FR)
  Receive Date: 20160903
  Receipt Date: 20160910
  Transmission Date: 20161109
  Serious: Yes (Hospitalization, Other)
  Sender: FDA-Public Use
  Company Number: FR-AMGEN-FRACT2016114236

PATIENT
  Age: 60 Year
  Sex: Male
  Weight: 85 kg

DRUGS (4)
  1. FORTUM [Suspect]
     Active Substance: CEFTAZIDIME
     Indication: SEPSIS
     Dosage: 2 G, UNK
     Route: 042
  2. VFEND [Concomitant]
     Active Substance: VORICONAZOLE
     Dosage: 500 MG, UNK
     Dates: start: 20150528
  3. FOSCAVIR [Suspect]
     Active Substance: FOSCARNET SODIUM
     Indication: CYTOMEGALOVIRUS INFECTION
     Dosage: 5 G, UNK
     Route: 042
  4. ROMIPLOSTIM [Suspect]
     Active Substance: ROMIPLOSTIM
     Indication: THROMBOCYTOPENIA
     Dosage: 1 MUG/KG, UNK
     Route: 065
     Dates: start: 20150728

REACTIONS (1)
  - Acute kidney injury [Not Recovered/Not Resolved]

NARRATIVE: CASE EVENT DATE: 20150803
